FAERS Safety Report 6476699-5 (Version None)
Quarter: 2009Q4

REPORT INFORMATION
  Report Type: 
  Country: None (occurrence: None)
  Receive Date: 20091207
  Receipt Date: 20091112
  Transmission Date: 20100525
  Serious: No
  Sender: FDA-Public Use
  Company Number: US-ROCHE-669081

PATIENT
  Age: 28 Year
  Sex: Female

DRUGS (3)
  1. TAMIFLU [Suspect]
     Dosage: FORGOT TO TAKE ONE DOSE
     Route: 048
     Dates: start: 20091108
  2. YAZ [Concomitant]
     Dosage: DAILY
     Route: 048
  3. MOTRIN [Concomitant]
     Dosage: AS NEEDED

REACTIONS (3)
  - DRUG DOSE OMISSION [None]
  - NAUSEA [None]
  - VOMITING [None]
